FAERS Safety Report 4502640-8 (Version None)
Quarter: 2004Q3

REPORT INFORMATION
  Report Type: 
  Country: None (occurrence: None)
  Receive Date: 20040928
  Receipt Date: 20040602
  Transmission Date: 20050211
  Serious: No
  Sender: FDA-Public Use
  Company Number: 04P-163-0262649-00

PATIENT
  Age: 74 Year
  Sex: Female
  Weight: 49.4421 kg

DRUGS (15)
  1. HUMIRA [Suspect]
     Indication: RHEUMATOID ARTHRITIS
     Dosage: 40 MG, 1 IN 2 WK, SUBCUTANEOUS
     Route: 058
     Dates: start: 20030310, end: 20040602
  2. HUMIRA [Suspect]
     Indication: RHEUMATOID ARTHRITIS
     Dosage: 40 MG, 1 IN 2 WK, SUBCUTANEOUS
     Route: 058
     Dates: start: 20040602
  3. PREDNISONE [Concomitant]
  4. HYDROXYCHLOROQUINE PHOSPHATE [Concomitant]
  5. METHOTREXATE [Concomitant]
  6. FOLIC ACID [Concomitant]
  7. CITRACAL + D [Concomitant]
  8. RISEDRONATE SODIUM [Concomitant]
  9. BUCINDOLOL HYDROCHLORIDE [Concomitant]
  10. FLUTICASONE PROPIONATE [Concomitant]
  11. ACETAMINOPHEN [Concomitant]
  12. MULTIVITAMIN [Concomitant]
  13. LEVOTHYROXINE SODIUM [Concomitant]
  14. DARVOCET [Concomitant]
  15. HISTEX [Concomitant]

REACTIONS (2)
  - CORONARY ARTERY STENOSIS [None]
  - DRUG INEFFECTIVE [None]
